FAERS Safety Report 11514027 (Version 5)
Quarter: 2019Q2

REPORT INFORMATION
  Report Type: Report from Study
  Country: US (occurrence: US)
  Receive Date: 20150916
  Receipt Date: 20190625
  Transmission Date: 20190711
  Serious: Yes (Other)
  Sender: FDA-Public Use
  Company Number: US-AMGEN-USASP2015094722

PATIENT
  Age: 57 Year
  Sex: Female

DRUGS (2)
  1. ENBREL [Suspect]
     Active Substance: ETANERCEPT
     Indication: RHEUMATOID ARTHRITIS
     Dosage: 50 MILLIGRAM, QWK
     Route: 065
     Dates: start: 2008
  2. LAMICTAL [Concomitant]
     Active Substance: LAMOTRIGINE
     Indication: SEIZURE
     Dosage: UNK
     Dates: start: 2002

REACTIONS (10)
  - Respiratory tract infection [Unknown]
  - T-cell lymphoma [Not Recovered/Not Resolved]
  - Varicose vein [Unknown]
  - White blood cell count decreased [Unknown]
  - Skin lesion [Unknown]
  - Injection site bruising [Unknown]
  - Injection site pain [Unknown]
  - Neutropenia [Unknown]
  - Spleen disorder [Unknown]
  - Sinusitis [Unknown]

NARRATIVE: CASE EVENT DATE: 2013
